FAERS Safety Report 25841660 (Version 1)
Quarter: 2025Q3

REPORT INFORMATION
  Report Type: Report from Study
  Country: US (occurrence: US)
  Receive Date: 20250924
  Receipt Date: 20250924
  Transmission Date: 20251020
  Serious: Yes (Other)
  Sender: ALEXION PHARMACEUTICALS
  Company Number: US-ASTRAZENECA-202508USA024373US

PATIENT
  Age: 63 Year
  Sex: Female

DRUGS (2)
  1. STRENSIQ [Suspect]
     Active Substance: ASFOTASE ALFA
     Indication: Phosphorus metabolism disorder
     Dosage: 98 MILLIGRAM, TIW
     Route: 065
  2. STRENSIQ [Suspect]
     Active Substance: ASFOTASE ALFA
     Dosage: 98 MILLIGRAM, TIW
     Route: 065

REACTIONS (4)
  - Neuropathy peripheral [Unknown]
  - Drug ineffective [Unknown]
  - Bone pain [Unknown]
  - Brain fog [Unknown]
